FAERS Safety Report 6719300-5 (Version None)
Quarter: 2010Q2

REPORT INFORMATION
  Report Type: 
  Country: None (occurrence: None)
  Receive Date: 20100511
  Receipt Date: 20100428
  Transmission Date: 20101027
  Serious: Yes (Hospitalization)
  Sender: FDA-Public Use
  Company Number: PHHY2010US27628

PATIENT
  Sex: Female
  Weight: 53 kg

DRUGS (1)
  1. EXJADE [Suspect]
     Indication: CONGENITAL APLASTIC ANAEMIA
     Dosage: 1500 MG/DAY
     Route: 048
     Dates: start: 20090708, end: 20100402

REACTIONS (1)
  - LARYNGEAL CANCER [None]
